FAERS Safety Report 7000605-8 (Version None)
Quarter: 2010Q3

REPORT INFORMATION
  Report Type: 
  Country: None (occurrence: None)
  Receive Date: 20100920
  Receipt Date: 20100903
  Transmission Date: 20110219
  Serious: No
  Sender: FDA-Public Use
  Company Number: US-B.I. PHARMACEUTICALS,INC./RIDGEFIELD-2010-BP-08436BP

PATIENT
  Sex: Female

DRUGS (6)
  1. SPIRIVA [Suspect]
     Indication: CHRONIC OBSTRUCTIVE PULMONARY DISEASE
     Dosage: 18 MCG
     Route: 055
     Dates: start: 20060101
  2. LEVOTHYROXINE [Concomitant]
     Indication: HYPOTHYROIDISM
  3. SYMBICORT [Concomitant]
  4. THEOPHYLLINE [Concomitant]
  5. PREDNISONE [Concomitant]
  6. PROVENTIL [Concomitant]

REACTIONS (1)
  - DRUG INEFFECTIVE [None]
